FAERS Safety Report 11861095 (Version 1)
Quarter: 2015Q4

REPORT INFORMATION
  Report Type: Spontaneous
  Country: US (occurrence: US)
  Receive Date: 20151222
  Receipt Date: 20151222
  Transmission Date: 20160305
  Serious: No
  Sender: FDA-Public Use
  Company Number: US-AVANIR PHARMACEUTICALS, INC.-2011NUEUSA00011

PATIENT
  Sex: Female
  Weight: 121.32 kg

DRUGS (4)
  1. NUEDEXTA [Suspect]
     Active Substance: DEXTROMETHORPHAN HYDROBROMIDE\QUINIDINE SULFATE
     Dosage: 1 CAP, QD
     Dates: start: 201103
  2. NUEDEXTA [Suspect]
     Active Substance: DEXTROMETHORPHAN HYDROBROMIDE\QUINIDINE SULFATE
     Dosage: 1 CAP, BID
     Dates: start: 20110310, end: 201103
  3. LORAZEPAM. [Concomitant]
     Active Substance: LORAZEPAM
  4. NUEDEXTA [Suspect]
     Active Substance: DEXTROMETHORPHAN HYDROBROMIDE\QUINIDINE SULFATE
     Indication: PRODUCT USED FOR UNKNOWN INDICATION
     Dosage: 1 CAP, QD
     Dates: start: 20110303, end: 20110309

REACTIONS (6)
  - Right ventricular hypertrophy [Unknown]
  - QRS axis abnormal [Unknown]
  - Fatigue [Unknown]
  - Bundle branch block left [Unknown]
  - Electrocardiogram repolarisation abnormality [Unknown]
  - Electrocardiogram T wave abnormal [Unknown]

NARRATIVE: CASE EVENT DATE: 201103
